FAERS Safety Report 12071612 (Version 1)
Quarter: 2016Q1

REPORT INFORMATION
  Report Type: Report from Study
  Country: GB (occurrence: GB)
  Receive Date: 20160212
  Receipt Date: 20160212
  Transmission Date: 20160526
  Serious: Yes (Death)
  Sender: FDA-Public Use
  Company Number: GB-ROCHE-1708847

PATIENT
  Sex: Male

DRUGS (1)
  1. ESBRIET [Suspect]
     Active Substance: PIRFENIDONE
     Indication: IDIOPATHIC PULMONARY FIBROSIS
     Route: 048
     Dates: start: 20150220

REACTIONS (5)
  - Bladder cancer [Fatal]
  - Lower respiratory tract infection [Fatal]
  - Chronic obstructive pulmonary disease [Fatal]
  - Prostate cancer [Fatal]
  - Pneumonia [Fatal]
